FAERS Safety Report 5159878-9 (Version None)
Quarter: 2006Q4

REPORT INFORMATION
  Report Type: 
  Country: None (occurrence: None)
  Receive Date: 20061129
  Receipt Date: 20060330
  Transmission Date: 20070319
  Serious: No
  Sender: FDA-Public Use
  Company Number: US-GLAXOSMITHKLINE-A0599755A

PATIENT
  Age: 65 Year
  Sex: Male
  Weight: 95.9 kg

DRUGS (4)
  1. WELLBUTRIN SR [Suspect]
     Dosage: 150MG TWICE PER DAY
     Route: 048
     Dates: start: 20060228, end: 20060301
  2. BUPROPION HCL [Suspect]
     Dosage: 150MG IN THE MORNING
     Route: 048
     Dates: start: 20060301
  3. DYAZIDE [Concomitant]
     Indication: HYPERTENSION
     Route: 048
     Dates: start: 20010101, end: 20060711
  4. AVAPRO [Concomitant]
     Indication: HYPERTENSION
     Dosage: 150MG UNKNOWN
     Route: 048
     Dates: start: 20031001

REACTIONS (1)
  - TINNITUS [None]
